FAERS Safety Report 5043898-9 (Version None)
Quarter: 2006Q3

REPORT INFORMATION
  Report Type: 
  Country: None (occurrence: None)
  Receive Date: 20060706
  Receipt Date: 20060522
  Transmission Date: 20061208
  Serious: Yes (Death, Other)
  Sender: FDA-Public Use
  Company Number: PHBS2006JP07649

PATIENT
  Age: 66 Year
  Sex: Male

DRUGS (5)
  1. DIOVAN [Suspect]
     Indication: COMPLETED SUICIDE
     Dosage: 1200 MG, ONCE/SINGLE
     Route: 048
     Dates: start: 20060521, end: 20060521
  2. DIOVAN [Suspect]
     Dosage: 160 MG/DAY
     Route: 048
  3. CALBLOCK [Suspect]
     Indication: COMPLETED SUICIDE
     Route: 048
     Dates: start: 20060521, end: 20060521
  4. CALBLOCK [Suspect]
     Dosage: 16 MG/DAY
     Route: 048
  5. TENORMIN [Suspect]
     Indication: COMPLETED SUICIDE
     Route: 048
     Dates: start: 20060521, end: 20060521

REACTIONS (10)
  - ASPIRATION [None]
  - ATRIOVENTRICULAR BLOCK [None]
  - BRADYCARDIA [None]
  - CARDIAC FAILURE [None]
  - COMPLETED SUICIDE [None]
  - CONDUCTION DISORDER [None]
  - DROWNING [None]
  - HYPOTENSION [None]
  - INTENTIONAL OVERDOSE [None]
  - LOSS OF CONSCIOUSNESS [None]
